FAERS Safety Report 13766443 (Version 2)
Quarter: 2018Q1

REPORT INFORMATION
  Report Type: Report from Study
  Country: BR (occurrence: BR)
  Receive Date: 20170719
  Receipt Date: 20180207
  Transmission Date: 20180508
  Serious: Yes (Other)
  Sender: FDA-Public Use
  Company Number: PHHY2017BR105569

PATIENT
  Sex: Male
  Weight: 75 kg

DRUGS (4)
  1. DIOVAN [Suspect]
     Active Substance: VALSARTAN
     Dosage: 0.25 DF (320 MG), UNK
     Route: 048
  2. DIOVAN [Suspect]
     Active Substance: VALSARTAN
     Dosage: 2 DF (80 MG), QD
     Route: 048
  3. DIOVAN [Suspect]
     Active Substance: VALSARTAN
     Indication: HYPERTENSION
     Dosage: 2 DF (320 MG), QD
     Route: 048
     Dates: start: 2008
  4. DIOVAN [Suspect]
     Active Substance: VALSARTAN
     Dosage: 80 MG, BID (MORNING AND AT NIGHT)
     Route: 048

REACTIONS (6)
  - Post procedural complication [Unknown]
  - Wrong technique in product usage process [Unknown]
  - Inappropriate schedule of drug administration [Unknown]
  - Hypotension [Recovered/Resolved]
  - Urinary tract obstruction [Unknown]
  - Blood pressure abnormal [Unknown]
